FAERS Safety Report 10378385 (Version 4)
Quarter: 2015Q2

REPORT INFORMATION
  Report Type: Spontaneous
  Country: CA (occurrence: None)
  Receive Date: 20140807
  Receipt Date: 20150506
  Transmission Date: 20150821
  Serious: Yes (Death, Other)
  Sender: FDA-Public Use
  Company Number: ADR-2014-01360

PATIENT

DRUGS (1)
  1. BACLOFEN INTRATHECAL 400 MCG/ML [Suspect]
     Active Substance: BACLOFEN

REACTIONS (3)
  - Device connection issue [None]
  - Aphagia [None]
  - Multiple sclerosis [None]

NARRATIVE: CASE EVENT DATE: 20140725
